FAERS Safety Report 16462770 (Version 2)
Quarter: 2019Q2

REPORT INFORMATION
  Report Type: Spontaneous
  Country: IT (occurrence: IT)
  Receive Date: 20190621
  Receipt Date: 20190625
  Transmission Date: 20190711
  Serious: Yes (Hospitalization, Other)
  Sender: FDA-Public Use
  Company Number: IT-ACCORD-133849

PATIENT
  Age: 37 Year
  Sex: Female
  Weight: 49 kg

DRUGS (4)
  1. SOLDESAM [Concomitant]
     Active Substance: DEXAMETHASONE
  2. PACLITAXEL/PACLITAXEL LIPOSOME [Suspect]
     Active Substance: PACLITAXEL
     Indication: BREAST CANCER
     Route: 042
     Dates: start: 20190502
  3. OMEPRAZOLE. [Concomitant]
     Active Substance: OMEPRAZOLE
  4. TACHIPIRINA [Concomitant]
     Active Substance: ACETAMINOPHEN

REACTIONS (2)
  - Anaemia [Recovering/Resolving]
  - Hypertransaminasaemia [Recovering/Resolving]

NARRATIVE: CASE EVENT DATE: 20190515
